FAERS Safety Report 5073303-8 (Version None)
Quarter: 2006Q3

REPORT INFORMATION
  Report Type: 
  Country: None (occurrence: None)
  Receive Date: 20060808
  Receipt Date: 20060731
  Transmission Date: 20061208
  Serious: Yes (Other)
  Sender: FDA-Public Use
  Company Number: PHBS2006BR11580

PATIENT
  Age: 52 Year
  Sex: Female
  Weight: 112 kg

DRUGS (5)
  1. CAPTOPRIL [Concomitant]
     Indication: HYPERTENSION
  2. LIPITOR [Concomitant]
     Indication: BLOOD TRIGLYCERIDES ABNORMAL
  3. LASIX [Concomitant]
  4. AMLODIPINE [Concomitant]
  5. FORASEQ [Suspect]
     Indication: ASTHMA

REACTIONS (2)
  - DYSPNOEA [None]
  - PNEUMONIA [None]
